FAERS Safety Report 7725819-0 (Version None)
Quarter: 2011Q3

REPORT INFORMATION
  Report Type: 
  Country: None (occurrence: None)
  Receive Date: 20110831
  Receipt Date: 20110819
  Transmission Date: 20111222
  Serious: Yes (Hospitalization)
  Sender: FDA-Public Use
  Company Number: 2011AP001810

PATIENT
  Age: 37 Year
  Sex: Female

DRUGS (4)
  1. DULOXETIME HYDROCHLORIDE [Suspect]
     Indication: MAJOR DEPRESSION
     Dosage: 120 MG;QD
  2. QUETIAPINE [Concomitant]
  3. LEVOTHYROXINE SODIUM [Concomitant]
  4. BUPROPION HYDROCHLORIDE [Suspect]
     Indication: MAJOR DEPRESSION
     Dosage: 300 MG;QD

REACTIONS (10)
  - SUICIDAL IDEATION [None]
  - TACHYCARDIA [None]
  - DRUG INTERACTION [None]
  - HOT FLUSH [None]
  - TEARFULNESS [None]
  - VISION BLURRED [None]
  - CEREBRAL ATROPHY [None]
  - AMENORRHOEA [None]
  - MIGRAINE [None]
  - DRUG LEVEL INCREASED [None]
